FAERS Safety Report 8451267 (Version 2)
Quarter: 2014Q2

REPORT INFORMATION
  Report Type: Spontaneous
  Country: US (occurrence: None)
  Receive Date: 20120216
  Receipt Date: 20140604
  Transmission Date: 20141212
  Serious: Yes (Hospitalization)
  Sender: FDA-Public Use
  Company Number: 20111013CINRY2366

PATIENT
  Age: 32 Year
  Sex: Female
  Weight: 102.06 kg

DRUGS (6)
  1. CINRYZE [Suspect]
     Indication: HEREDITARY ANGIOEDEMA
     Dosage: (1500 IU, 2 IN 1 WK), INTRAVENOUS
     Route: 042
     Dates: start: 20090710
  2. SYMBICORT (BUDESONIDE W/FORMOTEROL FUMARATE) (AEROSOL FOR INHALATION) [Concomitant]
  3. ALBUTEROL (SALBUTAMOL) [Concomitant]
  4. PRO AIR (PROCATEROL HYDROCHLORIDE) [Concomitant]
  5. SINGULAIR [Concomitant]
  6. NEXIUM (ESOMEPRAZOLE MAGNESIUM) [Concomitant]

REACTIONS (7)
  - Hereditary angioedema [None]
  - Musculoskeletal stiffness [None]
  - Pain [None]
  - Off label use [None]
  - Vaginal haemorrhage [None]
  - Therapy change [None]
  - Neck pain [None]
